FAERS Safety Report 6767345-1 (Version None)
Quarter: 2010Q2

REPORT INFORMATION
  Report Type: 
  Country: None (occurrence: None)
  Receive Date: 20100611
  Receipt Date: 20100611
  Transmission Date: 20101027
  Serious: Yes (Hospitalization)
  Sender: FDA-Public Use
  Company Number: None

PATIENT
  Sex: Female
  Weight: 73.4827 kg

DRUGS (1)
  1. CYMBALTA [Suspect]
     Indication: FIBROMYALGIA
     Dosage: 30MG. QD PO
     Route: 048
     Dates: start: 20100106, end: 20100502

REACTIONS (16)
  - ABDOMINAL PAIN [None]
  - AFFECT LABILITY [None]
  - ARTHRALGIA [None]
  - DECREASED APPETITE [None]
  - DEHYDRATION [None]
  - EMOTIONAL DISTRESS [None]
  - HEADACHE [None]
  - HOT FLUSH [None]
  - INJURY [None]
  - MANIA [None]
  - MYALGIA [None]
  - NAUSEA [None]
  - PHOTOPHOBIA [None]
  - TREMOR [None]
  - VOMITING [None]
  - WITHDRAWAL SYNDROME [None]
